APPROVED DRUG PRODUCT: PENICILLIN G PROCAINE
Active Ingredient: PENICILLIN G PROCAINE
Strength: 600,000 UNITS/ML
Dosage Form/Route: INJECTABLE;INJECTION
Application: A060101 | Product #001
Applicant: KING PHARMACEUTICALS LLC
Approved: Approved Prior to Jan 1, 1982 | RLD: No | RS: Yes | Type: RX